FAERS Safety Report 7233277-8 (Version None)
Quarter: 2011Q1

REPORT INFORMATION
  Report Type: 
  Country: None (occurrence: None)
  Receive Date: 20110119
  Receipt Date: 20110117
  Transmission Date: 20110831
  Serious: Yes (Hospitalization, Other)
  Sender: FDA-Public Use
  Company Number: DE-ABBOTT-10P-062-0682972-00

PATIENT
  Sex: Female

DRUGS (21)
  1. METHOTREXATE SODIUM [Concomitant]
     Indication: PSORIATIC ARTHROPATHY
     Route: 048
     Dates: start: 20070927, end: 20090415
  2. METHOTREXATE SODIUM [Concomitant]
     Indication: PSORIASIS
  3. HUMIRA [Suspect]
     Indication: PSORIATIC ARTHROPATHY
     Route: 058
     Dates: start: 20090320, end: 20100727
  4. NEUPOGEN [Concomitant]
     Indication: PRODUCT USED FOR UNKNOWN INDICATION
     Dosage: DAILY
     Route: 058
     Dates: start: 20101115
  5. TOREM [Concomitant]
     Indication: PRODUCT USED FOR UNKNOWN INDICATION
     Dosage: OPD
  6. MATULANE [Concomitant]
     Indication: PRODUCT USED FOR UNKNOWN INDICATION
     Dosage: 200 MG IN THE MORNINGS
     Dates: end: 20101118
  7. OXAZEPAM AL [Concomitant]
     Indication: PRODUCT USED FOR UNKNOWN INDICATION
     Dosage: 1 TABLET IF REQUIRED
  8. ETANERCEPT [Concomitant]
     Indication: PSORIASIS
     Route: 058
     Dates: start: 20060418, end: 20060814
  9. AMPHOTERICIN B [Concomitant]
     Indication: PRODUCT USED FOR UNKNOWN INDICATION
     Dosage: 4 TO 6 TIMES 1 PIPETTE DAILY
  10. RAPTIVA [Concomitant]
     Indication: PRODUCT USED FOR UNKNOWN INDICATION
     Dates: end: 20090101
  11. EFALIZUMAB [Concomitant]
     Indication: PSORIASIS
     Route: 058
     Dates: start: 20060821, end: 20090312
  12. EFALIZUMAB [Concomitant]
     Indication: PSORIATIC ARTHROPATHY
  13. ETANERCEPT [Concomitant]
     Indication: PSORIATIC ARTHROPATHY
  14. DECORTIN [Concomitant]
     Indication: PRODUCT USED FOR UNKNOWN INDICATION
     Dosage: OPD
     Dates: start: 20101125
  15. SAROTEN [Concomitant]
     Indication: PRODUCT USED FOR UNKNOWN INDICATION
     Dosage: OPD
  16. HUMIRA [Suspect]
     Indication: PSORIASIS
  17. ACYCLOVIR [Concomitant]
     Indication: PRODUCT USED FOR UNKNOWN INDICATION
  18. COTRIM [Concomitant]
     Indication: PRODUCT USED FOR UNKNOWN INDICATION
     Dosage: MONDAYS, WEDNESDAYS, FRIDAYS ONCE
  19. TAVOR [Concomitant]
     Indication: PRODUCT USED FOR UNKNOWN INDICATION
  20. ALLOPURINOL [Concomitant]
     Indication: PRODUCT USED FOR UNKNOWN INDICATION
     Dosage: OPD
  21. PANTOPRAZOLE [Concomitant]
     Indication: PRODUCT USED FOR UNKNOWN INDICATION
     Dosage: OPD

REACTIONS (3)
  - FATIGUE [None]
  - CHILLS [None]
  - HODGKIN'S DISEASE NODULAR SCLEROSIS STAGE IV [None]
